FAERS Safety Report 16714542 (Version 1)
Quarter: 2019Q3

REPORT INFORMATION
  Report Type: Spontaneous
  Country: AU (occurrence: AU)
  Receive Date: 20190819
  Receipt Date: 20190819
  Transmission Date: 20191004
  Serious: Yes (Other)
  Sender: FDA-Public Use
  Company Number: PHHY2019AU184270

PATIENT
  Age: 33 Year
  Sex: Female

DRUGS (2)
  1. BETAMETHASONE. [Suspect]
     Active Substance: BETAMETHASONE
     Indication: RESUSCITATION
     Route: 065
  2. MAGNESIUM SULPHATE [Suspect]
     Active Substance: MAGNESIUM SULFATE
     Indication: PROPHYLAXIS
     Route: 065

REACTIONS (3)
  - Premature delivery [Unknown]
  - Placenta accreta [Recovered/Resolved]
  - Maternal exposure during pregnancy [Unknown]
